FAERS Safety Report 22019197 (Version 1)
Quarter: 2023Q1

REPORT INFORMATION
  Report Type: Spontaneous
  Country: US (occurrence: US)
  Receive Date: 20230222
  Receipt Date: 20230222
  Transmission Date: 20230418
  Serious: No
  Sender: FDA-Public Use
  Company Number: US-ABBVIE-4307173

PATIENT
  Age: 58 Year
  Sex: Female
  Weight: 108.86 kg

DRUGS (1)
  1. RINVOQ [Suspect]
     Active Substance: UPADACITINIB
     Indication: Eczema
     Route: 048
     Dates: start: 20230213

REACTIONS (3)
  - Nausea [Recovered/Resolved]
  - Cerebral disorder [Recovering/Resolving]
  - Feeling jittery [Recovering/Resolving]

NARRATIVE: CASE EVENT DATE: 20230213
